FAERS Safety Report 21669894 (Version 1)
Quarter: 2022Q4

REPORT INFORMATION
  Report Type: Spontaneous
  Country: US (occurrence: None)
  Receive Date: 20221201
  Receipt Date: 20221201
  Transmission Date: 20230113
  Serious: Yes (Other)
  Sender: FDA-Public Use
  Company Number: None

PATIENT
  Age: 35 Year
  Sex: Male
  Weight: 134.3 kg

DRUGS (5)
  1. CLOZAPINE [Suspect]
     Active Substance: CLOZAPINE
     Indication: Schizophrenia
     Dosage: FREQUENCY : AT BEDTIME;?
     Dates: start: 20221028, end: 20221116
  2. RISPERDAL CONSTA [Concomitant]
     Active Substance: RISPERIDONE
  3. BENZTROPINE [Concomitant]
     Active Substance: BENZTROPINE
  4. DIVALPROEX SODIUM [Concomitant]
     Active Substance: DIVALPROEX SODIUM
  5. LEVOTHYROXINE [Concomitant]
     Active Substance: LEVOTHYROXINE

REACTIONS (4)
  - Upper respiratory tract infection [None]
  - Tachycardia [None]
  - Laboratory test abnormal [None]
  - Ejection fraction decreased [None]

NARRATIVE: CASE EVENT DATE: 20221115
